FAERS Safety Report 7981337-6 (Version None)
Quarter: 2011Q4

REPORT INFORMATION
  Report Type: 
  Country: None (occurrence: None)
  Receive Date: 20111212
  Receipt Date: 20111130
  Transmission Date: 20120403
  Serious: Yes (Other)
  Sender: FDA-Public Use
  Company Number: AUR-APL-2011-05952

PATIENT
  Age: 33 Year
  Sex: Male
  Weight: 105 kg

DRUGS (1)
  1. MIRTAZAPINE [Suspect]
     Indication: DEPRESSION
     Dosage: 15 MG (15 MG, 1 IN 1 D), ORAL
     Route: 048
     Dates: start: 20111010, end: 20111018

REACTIONS (4)
  - RASH [None]
  - DEPRESSED MOOD [None]
  - SUICIDAL IDEATION [None]
  - AGITATION [None]
